FAERS Safety Report 24031730 (Version 1)
Quarter: 2024Q2

REPORT INFORMATION
  Report Type: Report from Study
  Country: US (occurrence: US)
  Receive Date: 20240629
  Receipt Date: 20240629
  Transmission Date: 20240715
  Serious: Yes (Hospitalization)
  Sender: FDA-Public Use
  Company Number: US-ABBVIE-5818920

PATIENT
  Sex: Male

DRUGS (1)
  1. RINVOQ [Suspect]
     Active Substance: UPADACITINIB
     Indication: Dermatitis atopic
     Route: 048
     Dates: start: 20240531, end: 20240611

REACTIONS (4)
  - Haematemesis [Recovering/Resolving]
  - Abdominal discomfort [Unknown]
  - Nausea [Unknown]
  - Gastrointestinal motility disorder [Unknown]

NARRATIVE: CASE EVENT DATE: 20240101
